FAERS Safety Report 17989786 (Version 4)
Quarter: 2020Q4

REPORT INFORMATION
  Report Type: Spontaneous
  Country: AU (occurrence: AU)
  Receive Date: 20200707
  Receipt Date: 20201220
  Transmission Date: 20210113
  Serious: Yes (Life-Threatening, Hospitalization, Other)
  Sender: FDA-Public Use
  Company Number: AU-BAXTER-2020BAX013894

PATIENT
  Age: 64 Year
  Sex: Male
  Weight: 71.1 kg

DRUGS (22)
  1. DOXIL [Suspect]
     Active Substance: DOXORUBICIN HYDROCHLORIDE
     Indication: PLASMA CELL MYELOMA
     Dosage: DATES OF ADMINISTRATION OF DOXORUBICIN WERE BETWEEN MAY AND AUGUST, 2018
     Route: 065
  2. DEXAMETHASONE SODIUM PHOSPHATE. [Suspect]
     Active Substance: DEXAMETHASONE SODIUM PHOSPHATE
     Route: 065
  3. DEXAMETHASONE SODIUM PHOSPHATE. [Suspect]
     Active Substance: DEXAMETHASONE SODIUM PHOSPHATE
     Dosage: INDUCTION THERAPY
     Route: 065
  4. POMALIDOMIDE [Suspect]
     Active Substance: POMALIDOMIDE
     Indication: PLASMA CELL MYELOMA
     Route: 065
  5. MELPHALAN. [Suspect]
     Active Substance: MELPHALAN
     Indication: PLASMA CELL MYELOMA
     Dosage: HIGH-DOSE
     Route: 065
  6. DARATUMUMAB [Suspect]
     Active Substance: DARATUMUMAB
     Indication: PLASMA CELL MYELOMA
     Route: 065
  7. CLINDAMYCIN. [Concomitant]
     Active Substance: CLINDAMYCIN
     Indication: ANTIBIOTIC PROPHYLAXIS
     Route: 065
  8. DEXAMETHASONE SODIUM PHOSPHATE. [Suspect]
     Active Substance: DEXAMETHASONE SODIUM PHOSPHATE
     Indication: PLASMA CELL MYELOMA
     Route: 065
  9. CISPLATIN. [Suspect]
     Active Substance: CISPLATIN
     Indication: PLASMA CELL MYELOMA
     Route: 065
  10. DOXIL [Suspect]
     Active Substance: DOXORUBICIN HYDROCHLORIDE
     Route: 065
  11. LENALIDOMIDE [Suspect]
     Active Substance: LENALIDOMIDE
     Indication: PLASMA CELL MYELOMA
     Route: 065
  12. SULFADIAZINE. [Concomitant]
     Active Substance: SULFADIAZINE
     Indication: ANTIBIOTIC PROPHYLAXIS
     Route: 065
  13. CYCLOPHOSPHAMIDE. [Suspect]
     Active Substance: CYCLOPHOSPHAMIDE
     Indication: PLASMA CELL MYELOMA
     Route: 065
  14. THALIDOMIDE [Suspect]
     Active Substance: THALIDOMIDE
     Indication: PLASMA CELL MYELOMA
     Dosage: INDUCTION THERAPY
     Route: 065
  15. VALACICLOVIR HYDROCHLORIDE [Concomitant]
     Active Substance: VALACYCLOVIR HYDROCHLORIDE
     Indication: PROPHYLAXIS
     Route: 065
  16. METHOTREXATE. [Suspect]
     Active Substance: METHOTREXATE
     Indication: PLASMA CELL MYELOMA
  17. DEXAMETHASONE SODIUM PHOSPHATE. [Suspect]
     Active Substance: DEXAMETHASONE SODIUM PHOSPHATE
     Dosage: CLINICAL TRIAL
     Route: 065
  18. CARFILZOMIB [Suspect]
     Active Substance: CARFILZOMIB
     Indication: PLASMA CELL MYELOMA
     Route: 065
  19. VINCRISTINE [Suspect]
     Active Substance: VINCRISTINE
     Indication: PLASMA CELL MYELOMA
     Route: 065
  20. METHOTREXATE. [Suspect]
     Active Substance: METHOTREXATE
     Indication: PLASMA CELL MYELOMA
     Route: 037
  21. ETOPOSIDE. [Suspect]
     Active Substance: ETOPOSIDE
     Indication: PLASMA CELL MYELOMA
     Route: 065
  22. DEXAMETHASONE SODIUM PHOSPHATE. [Suspect]
     Active Substance: DEXAMETHASONE SODIUM PHOSPHATE
     Route: 065

REACTIONS (4)
  - JC virus infection [Unknown]
  - Cerebral toxoplasmosis [Unknown]
  - Neuropathy peripheral [Unknown]
  - Progressive multifocal leukoencephalopathy [Unknown]

NARRATIVE: CASE EVENT DATE: 201811
